FAERS Safety Report 7031668-1 (Version None)
Quarter: 2010Q4

REPORT INFORMATION
  Report Type: 
  Country: None (occurrence: None)
  Receive Date: 20101001
  Receipt Date: 20100922
  Transmission Date: 20110411
  Serious: Yes (Other)
  Sender: FDA-Public Use
  Company Number: US-1183504

PATIENT
  Age: 58 Year
  Sex: Female
  Weight: 190 kg

DRUGS (2)
  1. NEVANAC [Suspect]
     Dosage: OPHTHALMIC
     Route: 047
     Dates: start: 20100919, end: 20100920
  2. LEVOTHYROXINE SODIUM [Concomitant]

REACTIONS (4)
  - CHEST PAIN [None]
  - DYSPNOEA [None]
  - HEADACHE [None]
  - NAUSEA [None]
